FAERS Safety Report 10028920 (Version 3)
Quarter: 2014Q2

REPORT INFORMATION
  Report Type: Report from Study
  Country: CA (occurrence: CA)
  Receive Date: 20140321
  Receipt Date: 20140506
  Transmission Date: 20141212
  Serious: Yes (Other)
  Sender: FDA-Public Use
  Company Number: CA-ABBVIE-14P-028-1213265-00

PATIENT
  Sex: Female
  Weight: 56.75 kg

DRUGS (5)
  1. HUMIRA [Suspect]
     Indication: CROHN^S DISEASE
     Route: 058
     Dates: start: 20131009, end: 20140312
  2. AZATHIOPRINE [Concomitant]
     Indication: CROHN^S DISEASE
     Route: 048
  3. CYANOCOBALAMIN [Concomitant]
     Indication: CROHN^S DISEASE
     Route: 048
  4. FOLIC ACID [Concomitant]
     Indication: CROHN^S DISEASE
     Route: 048
  5. CLONAZEPAM [Concomitant]
     Indication: CROHN^S DISEASE
     Route: 048

REACTIONS (2)
  - Pelvic mass [Not Recovered/Not Resolved]
  - Ovarian mass [Not Recovered/Not Resolved]
